FAERS Safety Report 9372635 (Version 1)
Quarter: 2013Q2

REPORT INFORMATION
  Report Type: Report from Study
  Country: US (occurrence: US)
  Receive Date: 20130627
  Receipt Date: 20130627
  Transmission Date: 20140414
  Serious: Yes (Death)
  Sender: FDA-Public Use
  Company Number: US-MYLANLABS-2013S1003489

PATIENT
  Age: 58 Year
  Sex: Female
  Weight: 75.75 kg

DRUGS (1)
  1. CLOZAPINE TABLETS [Suspect]
     Indication: SCHIZOPHRENIA, PARANOID TYPE
     Route: 048
     Dates: start: 1993

REACTIONS (5)
  - Intestinal ischaemia [Fatal]
  - Abdominal pain [Fatal]
  - Intestinal resection [Fatal]
  - Renal failure [Fatal]
  - Infection [Fatal]
